FAERS Safety Report 5718810-7 (Version None)
Quarter: 2008Q2

REPORT INFORMATION
  Report Type: 
  Country: None (occurrence: None)
  Receive Date: 20080423
  Receipt Date: 20080408
  Transmission Date: 20081010
  Serious: Yes (Hospitalization)
  Sender: FDA-Public Use
  Company Number: A-CH2008-19846

PATIENT
  Age: 56 Year
  Sex: Female

DRUGS (9)
  1. TRACLEER [Suspect]
     Indication: PULMONARY HYPERTENSION
     Dosage: 62.5 MG, QD, ORAL
     Route: 048
     Dates: start: 20080125, end: 20080127
  2. KALIUM-R (POTASSIUM CHLORIDE) [Concomitant]
  3. DIGOXIN [Concomitant]
  4. ENALAPRIL MALEATE [Concomitant]
  5. SANDOSTEN COMP. (THENALIDINE TARTRATE, CALCIUM GLUBIONATE) [Concomitant]
  6. FUROSEMIDE [Concomitant]
  7. WARAN [Concomitant]
  8. NEXIUM [Concomitant]
  9. PRAVACHOL [Concomitant]

REACTIONS (1)
  - PULMONARY OEDEMA [None]
